FAERS Safety Report 7439458-2 (Version None)
Quarter: 2011Q2

REPORT INFORMATION
  Report Type: 
  Country: None (occurrence: None)
  Receive Date: 20110427
  Receipt Date: 20101213
  Transmission Date: 20111010
  Serious: Yes (Other)
  Sender: FDA-Public Use
  Company Number: US-BAYER-201015456NA

PATIENT
  Age: 38 Year
  Sex: Female
  Weight: 52.154 kg

DRUGS (2)
  1. YAZ [Suspect]
     Indication: ACNE
  2. YAZ [Suspect]
     Indication: CONTRACEPTION
     Dosage: ACCORDING TO PHARMACY RECORDS, YAZ WAS FILLED FROM 23-FEB-2007 TO 16-NOV-2008
     Route: 048
     Dates: start: 20040101, end: 20090101

REACTIONS (4)
  - DEEP VEIN THROMBOSIS [None]
  - PAIN IN EXTREMITY [None]
  - PHLEBITIS [None]
  - ERYTHEMA [None]
